FAERS Safety Report 12625948 (Version 3)
Quarter: 2016Q3

REPORT INFORMATION
  Report Type: Report from Study
  Country: IN (occurrence: IN)
  Receive Date: 20160805
  Receipt Date: 20160909
  Transmission Date: 20161109
  Serious: Yes (Other)
  Sender: FDA-Public Use
  Company Number: PHHY2011IN92101

PATIENT
  Age: 27 Year
  Sex: Female

DRUGS (1)
  1. GLIVEC [Suspect]
     Active Substance: IMATINIB MESYLATE
     Indication: CHRONIC MYELOID LEUKAEMIA
     Dosage: 400 MG, UNK
     Route: 065

REACTIONS (4)
  - Bronchospasm [Unknown]
  - Nephrolithiasis [Unknown]
  - Lower respiratory tract infection [Unknown]
  - Anal fissure [Unknown]

NARRATIVE: CASE EVENT DATE: 201309
